FAERS Safety Report 6653699-3 (Version None)
Quarter: 2010Q1

REPORT INFORMATION
  Report Type: 
  Country: None (occurrence: None)
  Receive Date: 20100326
  Receipt Date: 20081229
  Transmission Date: 20100710
  Serious: Yes (Other)
  Sender: FDA-Public Use
  Company Number: GB-PFIZER INC-2009150366

PATIENT
  Age: 74 Year
  Sex: Female

DRUGS (7)
  1. IRINOTECAN HCL [Suspect]
     Indication: COLORECTAL CANCER
     Dosage: 230 MG, EVERY 2 WEEKS
     Route: 042
     Dates: start: 20080925
  2. *FLUOROURACIL [Suspect]
     Indication: COLORECTAL CANCER
     Dosage: 521.6 MG, CYCLIC, EVERY 2 WEEKS
     Route: 042
     Dates: start: 20080925
  3. *FLUOROURACIL [Suspect]
     Dosage: 3215 MG, EVERY 2 WEEKS
     Route: 042
     Dates: start: 20080925
  4. *CALCIUM FOLINATE [Suspect]
     Indication: COLORECTAL CANCER
     Dosage: 650 MG, EVERY 2 WEEKS
     Route: 042
     Dates: start: 20080925
  5. BLINDED *NO SUBJECT DRUG [Suspect]
     Indication: COLORECTAL CANCER
     Dosage: 37.5 MG, 1X/DAY
     Route: 048
     Dates: start: 20080925
  6. BLINDED *PLACEBO [Suspect]
     Indication: COLORECTAL CANCER
     Dosage: 37.5 MG, 1X/DAY
     Route: 048
     Dates: start: 20080925
  7. BLINDED SUNITINIB MALATE [Suspect]
     Indication: COLORECTAL CANCER
     Dosage: 37.5 MG, 1X/DAY
     Route: 048
     Dates: start: 20080925

REACTIONS (1)
  - AMNESIA [None]
